FAERS Safety Report 8262157-4 (Version None)
Quarter: 2012Q2

REPORT INFORMATION
  Report Type: 
  Country: None (occurrence: None)
  Receive Date: 20120405
  Receipt Date: 20120323
  Transmission Date: 20120825
  Serious: Yes (Other)
  Sender: FDA-Public Use
  Company Number: JP-ROCHE-1052304

PATIENT
  Age: 74 Year
  Sex: Female

DRUGS (1)
  1. PEGASYS [Suspect]
     Indication: PRODUCT USED FOR UNKNOWN INDICATION
     Route: 058
     Dates: start: 20100901, end: 20101001

REACTIONS (3)
  - NEUTROPENIA [None]
  - SEPSIS [None]
  - CEREBRAL INFARCTION [None]
